FAERS Safety Report 19404902 (Version 6)
Quarter: 2022Q4

REPORT INFORMATION
  Report Type: Spontaneous
  Country: US (occurrence: US)
  Receive Date: 20210611
  Receipt Date: 20221219
  Transmission Date: 20230113
  Serious: No
  Sender: FDA-Public Use
  Company Number: US-PFIZER INC-2021556739

PATIENT
  Age: 43 Year
  Sex: Male
  Weight: 88.45 kg

DRUGS (2)
  1. GENOTROPIN [Suspect]
     Active Substance: SOMATROPIN
     Indication: Hypopituitarism
     Dosage: 0.4 MG, UNK
     Dates: start: 2021
  2. GENOTROPIN [Suspect]
     Active Substance: SOMATROPIN
     Dosage: 6 MG, 1X/DAY (6MG ONCE A DAY BY INJECTION)

REACTIONS (7)
  - Wrong technique in device usage process [Unknown]
  - Device leakage [Unknown]
  - Drug dose omission by device [Unknown]
  - Accidental exposure to product [Unknown]
  - Exposure via skin contact [Unknown]
  - Off label use [Unknown]
  - Hormone level abnormal [Unknown]
